FAERS Safety Report 7818603-0 (Version None)
Quarter: 2011Q4

REPORT INFORMATION
  Report Type: 
  Country: None (occurrence: None)
  Receive Date: 20111017
  Receipt Date: 20111007
  Transmission Date: 20120403
  Serious: Yes (Hospitalization, Other)
  Sender: FDA-Public Use
  Company Number: US-ASTRAZENECA-2011SE47425

PATIENT
  Age: 71 Year
  Sex: Male

DRUGS (14)
  1. PREDNISONE [Concomitant]
  2. HYDROCHLOROTHIAZIDE [Concomitant]
  3. METFORMIN HYDROCHLORIDE [Concomitant]
  4. ROCEPHIN [Concomitant]
  5. CRESTOR [Suspect]
     Route: 048
  6. FLONASE [Concomitant]
  7. TOPROL-XL [Suspect]
     Route: 048
  8. AMBIEN [Concomitant]
  9. METOPROLOL TARTRATE [Concomitant]
  10. GLYBURIDE [Concomitant]
  11. DOXYCYCLINE [Concomitant]
  12. ZYRTEC [Concomitant]
  13. LISINOPRIL [Concomitant]
  14. ACTOS [Concomitant]

REACTIONS (12)
  - EAR DISORDER [None]
  - HEARING IMPAIRED [None]
  - CATARACT [None]
  - HYPERTENSION [None]
  - EAR INFECTION [None]
  - MIDDLE EAR EFFUSION [None]
  - DEHYDRATION [None]
  - DIABETES MELLITUS [None]
  - EUSTACHIAN TUBE DYSFUNCTION [None]
  - PYREXIA [None]
  - NASAL CONGESTION [None]
  - CARDIAC DISORDER [None]
